FAERS Safety Report 20716817 (Version 1)
Quarter: 2022Q2

REPORT INFORMATION
  Report Type: Spontaneous
  Country: GB (occurrence: GB)
  Receive Date: 20220416
  Receipt Date: 20220416
  Transmission Date: 20220721
  Serious: Yes (Hospitalization, Other)
  Sender: FDA-Public Use
  Company Number: GB-AMGEN-GBRSP2022063256

PATIENT
  Age: 67 Year
  Sex: Male

DRUGS (8)
  1. ADALIMUMAB [Suspect]
     Active Substance: ADALIMUMAB
     Indication: Psoriasis
     Route: 065
  2. MYCOPHENOLATE MOFETIL [Concomitant]
     Active Substance: MYCOPHENOLATE MOFETIL
  3. SULFAMETHOXAZOLE\TRIMETHOPRIM [Concomitant]
     Active Substance: SULFAMETHOXAZOLE\TRIMETHOPRIM
  4. OMEPRAZOLE [Concomitant]
     Active Substance: OMEPRAZOLE
  5. ASPIRIN [Concomitant]
     Active Substance: ASPIRIN
  6. AMLODIPINE [Concomitant]
     Active Substance: AMLODIPINE BESYLATE
  7. SODIUM BICARBONATE [Concomitant]
     Active Substance: SODIUM BICARBONATE
  8. TACROLIMUS [Concomitant]
     Active Substance: TACROLIMUS
     Indication: Hyperkalaemia

REACTIONS (1)
  - Hyperkalaemia [Recovered/Resolved]
